FAERS Safety Report 12852787 (Version 1)
Quarter: 2016Q4

REPORT INFORMATION
  Report Type: Spontaneous
  Country: US (occurrence: US)
  Receive Date: 20161016
  Receipt Date: 20161016
  Transmission Date: 20170207
  Serious: Yes (Disabling)
  Sender: FDA-Public Use
  Company Number: None

PATIENT
  Age: 43 Year
  Sex: Female
  Weight: 87.75 kg

DRUGS (1)
  1. DEPO-PROVERA [Suspect]
     Active Substance: MEDROXYPROGESTERONE ACETATE
     Indication: CONTRACEPTION
     Dosage: ?          OTHER FREQUENCY:EVERY 3 MONTHS;?
     Route: 058

REACTIONS (9)
  - Headache [None]
  - Fatigue [None]
  - Disturbance in attention [None]
  - Dizziness [None]
  - Alopecia [None]
  - Metrorrhagia [None]
  - Pain [None]
  - Amenorrhoea [None]
  - Eye pain [None]
